FAERS Safety Report 7842679-8 (Version None)
Quarter: 2011Q4

REPORT INFORMATION
  Report Type: 
  Country: None (occurrence: None)
  Receive Date: 20111025
  Receipt Date: 20111012
  Transmission Date: 20120403
  Serious: Yes (Other)
  Sender: FDA-Public Use
  Company Number: US-BAYER-2011-027476

PATIENT
  Sex: Female
  Weight: 91 kg

DRUGS (2)
  1. YAZ [Suspect]
     Indication: ACNE
     Dosage: UNK
     Route: 048
     Dates: start: 20080901, end: 20100101
  2. CLINDAMYCIN [Concomitant]
     Indication: ACNE
     Dosage: UNK UNK, BIDORAL

REACTIONS (8)
  - PAIN [None]
  - CHOLELITHIASIS [None]
  - FEAR [None]
  - FAT INTOLERANCE [None]
  - BILIARY COLIC [None]
  - ABDOMINAL PAIN [None]
  - CHOLECYSTITIS CHRONIC [None]
  - INJURY [None]
